FAERS Safety Report 4383731-1 (Version None)
Quarter: 2004Q2

REPORT INFORMATION
  Report Type: 
  Country: None (occurrence: None)
  Receive Date: 20040608
  Receipt Date: 20030804
  Transmission Date: 20050107
  Serious: Yes (Other)
  Sender: FDA-Public Use
  Company Number: 200312696BCC

PATIENT
  Age: 62 Year
  Sex: Male
  Weight: 113.3993 kg

DRUGS (4)
  1. ALEVE [Suspect]
     Indication: GROIN PAIN
     Dosage: 220 MG, BID, ORAL
     Route: 048
     Dates: start: 20030201, end: 20030804
  2. GEMFIBROZIL [Concomitant]
  3. FLOMAX [Concomitant]
  4. ASPIRIN [Concomitant]

REACTIONS (1)
  - DYSPNOEA [None]
